FAERS Safety Report 9633368 (Version 1)
Quarter: 2013Q4

REPORT INFORMATION
  Report Type: Spontaneous
  Country: US (occurrence: None)
  Receive Date: 20131018
  Receipt Date: 20131018
  Transmission Date: 20140711
  Serious: No
  Sender: FDA-Public Use
  Company Number: None

PATIENT
  Sex: Female
  Weight: 66.68 kg

DRUGS (10)
  1. SIMVASTATIN [Suspect]
     Indication: BLOOD CHOLESTEROL INCREASED
     Route: 048
     Dates: start: 2006, end: 20130101
  2. LEVOTHYROXINE [Concomitant]
  3. HYDROCHLOROTHIAZIDE [Concomitant]
  4. SERTRALINE [Concomitant]
  5. I-CAP VITAMINS [Concomitant]
  6. D3 [Concomitant]
  7. CALCIUM-D [Concomitant]
  8. ASPERIN [Concomitant]
  9. COQ-10 [Concomitant]
  10. TUMS [Concomitant]

REACTIONS (4)
  - Myalgia [None]
  - Pain in extremity [None]
  - Arthralgia [None]
  - Abasia [None]
